FAERS Safety Report 4921615-8 (Version None)
Quarter: 2006Q1

REPORT INFORMATION
  Report Type: 
  Country: None (occurrence: None)
  Receive Date: 20060224
  Receipt Date: 20050215
  Transmission Date: 20060701
  Serious: No
  Sender: FDA-Public Use
  Company Number: US-BRISTOL-MYERS SQUIBB COMPANY-12869053

PATIENT
  Age: 72 Year
  Sex: Female

DRUGS (8)
  1. MONISTAT 1 COMBINATION PACK [Suspect]
     Indication: VULVOVAGINAL MYCOTIC INFECTION
     Route: 067
     Dates: start: 20050208, end: 20050208
  2. GLUCOPHAGE [Concomitant]
  3. NEURONTIN [Concomitant]
  4. ACCUPRIL [Concomitant]
  5. LIPITOR [Concomitant]
  6. XANAX [Concomitant]
  7. WELLBUTRIN XL [Concomitant]
  8. REMERON [Concomitant]

REACTIONS (1)
  - DRUG INEFFECTIVE [None]
